FAERS Safety Report 10047472 (Version 1)
Quarter: 2014Q1

REPORT INFORMATION
  Report Type: Spontaneous
  Country: SI (occurrence: SI)
  Receive Date: 20140331
  Receipt Date: 20140331
  Transmission Date: 20141002
  Serious: Yes (Life-Threatening, Other)
  Sender: FDA-Public Use
  Company Number: SI-JNJFOC-20140316044

PATIENT
  Age: 79 Year
  Sex: Male

DRUGS (2)
  1. XARELTO [Suspect]
     Indication: PRODUCT USED FOR UNKNOWN INDICATION
     Route: 048
     Dates: end: 20140317
  2. ASPIRIN [Interacting]
     Indication: PRODUCT USED FOR UNKNOWN INDICATION
     Route: 065
     Dates: start: 20140311, end: 20140317

REACTIONS (7)
  - Ischaemic stroke [Unknown]
  - Epilepsy [Unknown]
  - Haemorrhagic transformation stroke [Unknown]
  - Blindness unilateral [Unknown]
  - Headache [Unknown]
  - Paresis [Unknown]
  - Drug interaction [Unknown]
